FAERS Safety Report 14981527 (Version 1)
Quarter: 2018Q2

REPORT INFORMATION
  Report Type: Report from Study
  Country: CA (occurrence: CA)
  Receive Date: 20180607
  Receipt Date: 20180607
  Transmission Date: 20180711
  Serious: Yes (Other)
  Sender: FDA-Public Use
  Company Number: CA-BRISTOL-MYERS SQUIBB COMPANY-BMS-2018-050005

PATIENT
  Age: 41 Year
  Sex: Female

DRUGS (1)
  1. ABATACEPT [Suspect]
     Active Substance: ABATACEPT
     Indication: PRODUCT USED FOR UNKNOWN INDICATION
     Dosage: UNK
     Route: 065
     Dates: start: 20180309

REACTIONS (9)
  - Malaise [Unknown]
  - Nausea [Unknown]
  - Mass [Unknown]
  - Dizziness [Unknown]
  - Uterine disorder [Unknown]
  - Fatigue [Unknown]
  - Arthralgia [Unknown]
  - Peripheral swelling [Unknown]
  - Oral mucosal exfoliation [Unknown]

NARRATIVE: CASE EVENT DATE: 201805
